FAERS Safety Report 5823591-2 (Version None)
Quarter: 2008Q3

REPORT INFORMATION
  Report Type: 
  Country: None (occurrence: None)
  Receive Date: 20080725
  Receipt Date: 20080718
  Transmission Date: 20090109
  Serious: No
  Sender: FDA-Public Use
  Company Number: US-BOEHRINGER INGELHEIM GMBH, GERMANY-2008-BP-11321BP

PATIENT
  Sex: Male

DRUGS (2)
  1. MICARDIS [Suspect]
     Indication: HYPERTENSION
     Route: 048
     Dates: start: 20080627
  2. MICARDIS [Suspect]
     Dates: start: 20080711

REACTIONS (3)
  - BACK PAIN [None]
  - CHROMATURIA [None]
  - DRUG INEFFECTIVE [None]
